FAERS Safety Report 21256333 (Version 1)
Quarter: 2022Q3

REPORT INFORMATION
  Report Type: Spontaneous
  Country: US (occurrence: US)
  Receive Date: 20220825
  Receipt Date: 20220825
  Transmission Date: 20221027
  Serious: Yes (Hospitalization)
  Sender: FDA-Public Use
  Company Number: US-ESPERIONTHERAPEUTICS-2022USA01630

PATIENT
  Age: 67 Year
  Sex: Female
  Weight: 64.853 kg

DRUGS (3)
  1. NEXLIZET [Suspect]
     Active Substance: BEMPEDOIC ACID\EZETIMIBE
     Indication: Type IIa hyperlipidaemia
     Dosage: 180/10 MILLIGRAM, QD
     Route: 048
     Dates: start: 202201, end: 202201
  2. NEXLIZET [Suspect]
     Active Substance: BEMPEDOIC ACID\EZETIMIBE
     Dosage: 180/10 MILLIGRAM, QD
     Route: 048
     Dates: start: 20220207, end: 20220212
  3. NEXLETOL [Suspect]
     Active Substance: BEMPEDOIC ACID
     Indication: Type IIa hyperlipidaemia
     Dosage: 180 MILLIGRAM, SINGLE
     Route: 048
     Dates: start: 20220804, end: 20220804

REACTIONS (10)
  - Loss of consciousness [Recovered/Resolved]
  - Head injury [Recovered/Resolved]
  - Musculoskeletal stiffness [Recovered/Resolved]
  - Neuralgia [Recovered/Resolved]
  - Fall [Recovered/Resolved]
  - Blood cholesterol increased [Unknown]
  - Neck pain [Recovered/Resolved]
  - Ligament sprain [Recovered/Resolved]
  - Arthralgia [Recovered/Resolved]
  - Back pain [Recovered/Resolved]

NARRATIVE: CASE EVENT DATE: 20220101
